FAERS Safety Report 9332120 (Version 2)
Quarter: 2013Q2

REPORT INFORMATION
  Report Type: Report from Study
  Country: SE (occurrence: SE)
  Receive Date: 20130606
  Receipt Date: 20130617
  Transmission Date: 20140414
  Serious: Yes (Other)
  Sender: FDA-Public Use
  Company Number: SE-AMGEN-SWECT2013039604

PATIENT
  Age: 49 Year
  Sex: Female

DRUGS (2)
  1. ETANERCEPT [Suspect]
     Indication: RHEUMATOID ARTHRITIS
     Dosage: 50 MG, UNSPECIFIED FREQUENCY
     Route: 058
     Dates: start: 20130227, end: 20130423
  2. METHOTREXATE [Concomitant]
     Dosage: UNK

REACTIONS (1)
  - Breast cancer female [Unknown]
